FAERS Safety Report 18161264 (Version 1)
Quarter: 2020Q3

REPORT INFORMATION
  Report Type: Spontaneous
  Country: US (occurrence: US)
  Receive Date: 20200817
  Receipt Date: 20200817
  Transmission Date: 20201103
  Serious: No
  Sender: FDA-Public Use
  Company Number: None

PATIENT
  Age: 62 Year
  Sex: Female
  Weight: 73.04 kg

DRUGS (19)
  1. CAPECITABINE. [Suspect]
     Active Substance: CAPECITABINE
     Indication: BREAST CANCER FEMALE
     Route: 048
     Dates: start: 20200619
  2. ANASTROZOLE 1MG [Concomitant]
     Active Substance: ANASTROZOLE
  3. LEVETIRACETAM 1000MG [Concomitant]
     Active Substance: LEVETIRACETAM
  4. CAPECITABINE. [Suspect]
     Active Substance: CAPECITABINE
     Indication: BREAST CANCER FEMALE
     Route: 048
     Dates: start: 20200619
  5. AMLODIPINE 2.5MG [Concomitant]
     Active Substance: AMLODIPINE BESYLATE
  6. QUETIAPINE 200MG [Concomitant]
     Active Substance: QUETIAPINE
  7. OMEPRAZOLE 20MG [Concomitant]
     Active Substance: OMEPRAZOLE
  8. ONDANSETRON 8MG [Concomitant]
     Active Substance: ONDANSETRON
  9. TIZANIDINE 4MG [Concomitant]
     Active Substance: TIZANIDINE
  10. DEXAMETHASONE 4MG [Concomitant]
     Active Substance: DEXAMETHASONE
  11. NICOTINE STEP 2 14MG/24HR [Concomitant]
  12. JANUMET 50?1000MG [Concomitant]
  13. GABAPENTIN 600MG [Concomitant]
     Active Substance: GABAPENTIN
  14. BACLOFEN 10MG [Concomitant]
     Active Substance: BACLOFEN
  15. HYDROXYZINE 25MG [Concomitant]
  16. LORAZEPAM 1MG [Concomitant]
     Active Substance: LORAZEPAM
  17. VITAMIN D3 [Concomitant]
     Active Substance: CHOLECALCIFEROL
  18. LEVOTHYROXINE 100MCG [Concomitant]
     Active Substance: LEVOTHYROXINE
  19. CITALOPRAM [Concomitant]
     Active Substance: CITALOPRAM HYDROBROMIDE

REACTIONS (1)
  - Asthenia [None]

NARRATIVE: CASE EVENT DATE: 20200817
